FAERS Safety Report 8131586-1 (Version None)
Quarter: 2012Q1

REPORT INFORMATION
  Report Type: 
  Country: None (occurrence: None)
  Receive Date: 20120213
  Receipt Date: 20120207
  Transmission Date: 20120608
  Serious: No
  Sender: FDA-Public Use
  Company Number: US-PFIZER INC-2012035058

PATIENT
  Sex: Female

DRUGS (6)
  1. NORGESTREL AND ETHINYL ESTRADIOL [Suspect]
     Indication: OFF LABEL USE
     Dosage: UNK
     Dates: end: 20120112
  2. NOVOLOG [Concomitant]
  3. GLYBURIDE [Concomitant]
  4. PROGESTERONE [Concomitant]
  5. NORGESTREL AND ETHINYL ESTRADIOL [Suspect]
     Indication: HORMONE THERAPY
  6. LANTUS [Concomitant]

REACTIONS (5)
  - HEADACHE [None]
  - MOOD SWINGS [None]
  - DRUG INEFFECTIVE FOR UNAPPROVED INDICATION [None]
  - HOT FLUSH [None]
  - FATIGUE [None]
